FAERS Safety Report 7959292 (Version 2)
Quarter: 2013Q2

REPORT INFORMATION
  Report Type: Spontaneous
  Country: US (occurrence: US)
  Receive Date: 20110525
  Receipt Date: 20130425
  Transmission Date: 20140414
  Serious: Yes (Death, Hospitalization, Other)
  Sender: FDA-Public Use
  Company Number: US-PFIZER INC-2011109230

PATIENT
  Age: 60 Year
  Sex: Male

DRUGS (3)
  1. DILANTIN [Suspect]
     Indication: CONVULSION
     Dosage: 300 MG, 1X/DAY AT BED TIME
     Route: 048
     Dates: start: 20090610, end: 20090713
  2. AUGMENTIN [Concomitant]
     Dosage: UNK
     Dates: start: 20090610, end: 20090625
  3. ZOSYN [Concomitant]
     Dosage: UNK
     Dates: start: 20090610, end: 20090625

REACTIONS (1)
  - Stevens-Johnson syndrome [Fatal]
